FAERS Safety Report 23843811 (Version 1)
Quarter: 2024Q2

REPORT INFORMATION
  Report Type: Report from Study
  Country: GB (occurrence: GB)
  Receive Date: 20240510
  Receipt Date: 20240510
  Transmission Date: 20240716
  Serious: Yes (Other)
  Sender: FDA-Public Use
  Company Number: GB-ABBVIE-5754464

PATIENT
  Sex: Female

DRUGS (1)
  1. HUMIRA [Suspect]
     Active Substance: ADALIMUMAB
     Indication: Crohn^s disease
     Dosage: FORM STRENGTH: 40 MILLIGRAM
     Route: 058

REACTIONS (6)
  - Small intestinal resection [Unknown]
  - Pain [Unknown]
  - Nausea [Unknown]
  - Surgery [Unknown]
  - Cholecystitis [Unknown]
  - Cholelithiasis [Unknown]
